FAERS Safety Report 14999258 (Version 2)
Quarter: 2018Q3

REPORT INFORMATION
  Report Type: Report from Study
  Country: PL (occurrence: PL)
  Receive Date: 20180612
  Receipt Date: 20180727
  Transmission Date: 20181010
  Serious: Yes (Hospitalization)
  Sender: FDA-Public Use
  Company Number: PL-ROCHE-2137435

PATIENT
  Age: 62 Year
  Sex: Male
  Weight: 74 kg

DRUGS (4)
  1. ATEZOLIZUMAB. [Suspect]
     Active Substance: ATEZOLIZUMAB
     Indication: NON-SMALL CELL LUNG CANCER METASTATIC
     Dosage: WILL RECEIVE 1200 MILLIGRAMS (MG) OF ATEZOLIZUMAB ADMINISTERED BY INTRAVENOUS INFUSION ON DAY 1 OF E
     Route: 042
     Dates: start: 20180221
  2. TRANSTEC [Concomitant]
     Active Substance: BUPRENORPHINE
     Indication: MUSCULOSKELETAL CHEST PAIN
     Route: 062
     Dates: start: 20180425
  3. SEVREDOL [Concomitant]
     Active Substance: MORPHINE
     Indication: MUSCULOSKELETAL CHEST PAIN
     Route: 048
     Dates: start: 20180425
  4. LYRICA [Concomitant]
     Active Substance: PREGABALIN
     Indication: MUSCULOSKELETAL CHEST PAIN
     Route: 048
     Dates: start: 20180425

REACTIONS (2)
  - Myalgia [Not Recovered/Not Resolved]
  - Arthralgia [Not Recovered/Not Resolved]

NARRATIVE: CASE EVENT DATE: 20180606
